FAERS Safety Report 5886070-2 (Version None)
Quarter: 2008Q3

REPORT INFORMATION
  Report Type: 
  Country: None (occurrence: None)
  Receive Date: 20080917
  Receipt Date: 20080905
  Transmission Date: 20090109
  Serious: Yes (Death, Hospitalization)
  Sender: FDA-Public Use
  Company Number: CN-ROCHE-585145

PATIENT
  Sex: Male

DRUGS (4)
  1. MYCOPHENOLATE MOFETIL [Suspect]
     Indication: RENAL TRANSPLANT
     Dosage: DOSE BLINDED.
     Route: 048
     Dates: start: 20050429
  2. MYCOPHENOLATE MOFETIL [Suspect]
     Dosage: DOSE DECREASED.
     Route: 048
     Dates: end: 20050703
  3. ERL080A [Suspect]
     Indication: RENAL TRANSPLANT
     Dosage: REPORTED AS BLINDED ERL080A
     Route: 048
     Dates: start: 20050429, end: 20050703
  4. NEORAL [Suspect]
     Indication: RENAL TRANSPLANT
     Route: 065

REACTIONS (4)
  - LUNG INFECTION [None]
  - MECHANICAL VENTILATION [None]
  - PYREXIA [None]
  - RESPIRATORY FAILURE [None]
